FAERS Safety Report 18340642 (Version 3)
Quarter: 2022Q1

REPORT INFORMATION
  Report Type: Spontaneous
  Country: CA (occurrence: CA)
  Receive Date: 20201002
  Receipt Date: 20220322
  Transmission Date: 20220423
  Serious: Yes (Other)
  Sender: FDA-Public Use
  Company Number: CA-MUNDIPHARMA RESEARCH LIMITED-CAN-2020-0011631

PATIENT
  Sex: Male

DRUGS (92)
  1. HYDROMORPHONE [Suspect]
     Active Substance: HYDROMORPHONE
     Indication: Pain
     Dosage: 15 MG, BID
     Route: 048
  2. HYDROMORPHONE [Suspect]
     Active Substance: HYDROMORPHONE
     Dosage: 15 ML, BID
     Route: 048
  3. HYDROMORPHONE [Suspect]
     Active Substance: HYDROMORPHONE
     Dosage: 1.5 MG, 2 EVERY 1 DAY
     Route: 048
  4. ARANESP [Suspect]
     Active Substance: DARBEPOETIN ALFA
     Indication: Anaemia
     Dosage: UNK UNK, 1/WEEK
     Route: 058
  5. ARANESP [Suspect]
     Active Substance: DARBEPOETIN ALFA
     Dosage: UNK
     Route: 058
  6. AZATHIOPRINE [Suspect]
     Active Substance: AZATHIOPRINE
     Indication: Product used for unknown indication
     Dosage: UNK
     Route: 048
  7. AZATHIOPRINE [Suspect]
     Active Substance: AZATHIOPRINE
     Dosage: UNK
     Route: 042
  8. AZATHIOPRINE [Suspect]
     Active Substance: AZATHIOPRINE
     Dosage: UNK
     Route: 065
  9. AZATHIOPRINE [Suspect]
     Active Substance: AZATHIOPRINE
     Dosage: UNK
     Route: 065
  10. AZATHIOPRINE [Suspect]
     Active Substance: AZATHIOPRINE
     Dosage: UNK
     Route: 065
  11. AZATHIOPRINE [Suspect]
     Active Substance: AZATHIOPRINE
     Dosage: UNK
     Route: 042
  12. AZATHIOPRINE [Suspect]
     Active Substance: AZATHIOPRINE
     Dosage: UNK
     Route: 042
  13. AZATHIOPRINE [Suspect]
     Active Substance: AZATHIOPRINE
     Dosage: UNK
     Route: 065
  14. AZATHIOPRINE [Suspect]
     Active Substance: AZATHIOPRINE
     Dosage: UNK
     Route: 065
  15. AZATHIOPRINE [Suspect]
     Active Substance: AZATHIOPRINE
     Dosage: UNK
     Route: 042
  16. AZATHIOPRINE [Suspect]
     Active Substance: AZATHIOPRINE
     Dosage: UNK
     Route: 065
  17. AZATHIOPRINE [Suspect]
     Active Substance: AZATHIOPRINE
     Dosage: UNK
     Route: 065
  18. AZATHIOPRINE [Suspect]
     Active Substance: AZATHIOPRINE
     Dosage: UNK
     Route: 065
  19. AZATHIOPRINE [Suspect]
     Active Substance: AZATHIOPRINE
     Dosage: UNK
     Route: 065
  20. AZATHIOPRINE [Suspect]
     Active Substance: AZATHIOPRINE
     Dosage: UNK
     Route: 042
  21. AZATHIOPRINE [Suspect]
     Active Substance: AZATHIOPRINE
     Dosage: UNK
     Route: 065
  22. CALCIUM CARBONATE\VITAMIN D [Suspect]
     Active Substance: CALCIUM CARBONATE\VITAMIN D
     Indication: Osteoporosis
     Dosage: 500 MG, BID
     Route: 048
  23. FOLIC ACID [Suspect]
     Active Substance: FOLIC ACID
     Indication: Product used for unknown indication
     Dosage: 1 MG, DAILY
     Route: 048
  24. FOLIC ACID [Suspect]
     Active Substance: FOLIC ACID
     Dosage: 1 ML, DAILY
     Route: 048
  25. FOLIC ACID [Suspect]
     Active Substance: FOLIC ACID
     Dosage: UNK
     Route: 065
  26. FOLIC ACID [Suspect]
     Active Substance: FOLIC ACID
     Dosage: UNK
     Route: 065
  27. FOLIC ACID [Suspect]
     Active Substance: FOLIC ACID
     Dosage: UNK
     Route: 042
  28. FOLIC ACID [Suspect]
     Active Substance: FOLIC ACID
     Dosage: UNK
     Route: 042
  29. FOLIC ACID [Suspect]
     Active Substance: FOLIC ACID
     Dosage: UNK
     Route: 065
  30. IMURAN [Suspect]
     Active Substance: AZATHIOPRINE
     Indication: Product used for unknown indication
     Dosage: UNK
     Route: 065
  31. INFLIXIMAB [Suspect]
     Active Substance: INFLIXIMAB
     Indication: Crohn^s disease
     Dosage: UNK
     Route: 042
  32. LASIX [Suspect]
     Active Substance: FUROSEMIDE
     Indication: Product used for unknown indication
     Dosage: 500 MG, TID
     Route: 065
  33. LASIX [Suspect]
     Active Substance: FUROSEMIDE
     Dosage: 500 ML, TID
     Route: 048
  34. LASIX [Suspect]
     Active Substance: FUROSEMIDE
     Dosage: UNK
     Route: 042
  35. LASIX [Suspect]
     Active Substance: FUROSEMIDE
     Dosage: UNK
     Route: 065
  36. LASIX [Suspect]
     Active Substance: FUROSEMIDE
     Dosage: UNK
     Route: 065
  37. METOPROLOL [Suspect]
     Active Substance: METOPROLOL
     Indication: Blood pressure abnormal
     Dosage: 25 MG, BID
     Route: 048
  38. METOPROLOL [Suspect]
     Active Substance: METOPROLOL
     Dosage: 25 ML, BID
     Route: 048
  39. METOPROLOL [Suspect]
     Active Substance: METOPROLOL
     Dosage: 2.5 MG, BID
     Route: 048
  40. PANTOPRAZOLE [Suspect]
     Active Substance: PANTOPRAZOLE
     Indication: Product used for unknown indication
     Dosage: 40 MG, DAILY
     Route: 048
  41. PANTOPRAZOLE [Suspect]
     Active Substance: PANTOPRAZOLE
     Dosage: 40 ML, DAILY
     Route: 065
  42. PANTOPRAZOLE [Suspect]
     Active Substance: PANTOPRAZOLE
     Dosage: UNK
     Route: 042
  43. PANTOPRAZOLE [Suspect]
     Active Substance: PANTOPRAZOLE
     Dosage: UNK
     Route: 065
  44. PANTOPRAZOLE [Suspect]
     Active Substance: PANTOPRAZOLE
     Dosage: UNK
     Route: 065
  45. PANTOPRAZOLE [Suspect]
     Active Substance: PANTOPRAZOLE
     Dosage: UNK
     Route: 065
  46. PANTOPRAZOLE [Suspect]
     Active Substance: PANTOPRAZOLE
     Dosage: UNK
     Route: 065
  47. PANTOPRAZOLE [Suspect]
     Active Substance: PANTOPRAZOLE
     Dosage: UNK
     Route: 042
  48. PANTOPRAZOLE [Suspect]
     Active Substance: PANTOPRAZOLE
     Dosage: UNK
     Route: 042
  49. GLYCOPYRRONIUM\INDACATEROL [Suspect]
     Active Substance: GLYCOPYRRONIUM\INDACATEROL
     Indication: Product used for unknown indication
     Dosage: UNK UNK, DAILY
     Route: 055
  50. GLYCOPYRRONIUM\INDACATEROL [Suspect]
     Active Substance: GLYCOPYRRONIUM\INDACATEROL
     Dosage: UNK
     Route: 042
  51. GLYCOPYRRONIUM\INDACATEROL [Suspect]
     Active Substance: GLYCOPYRRONIUM\INDACATEROL
     Dosage: UNK
     Route: 042
  52. GLYCOPYRRONIUM\INDACATEROL [Suspect]
     Active Substance: GLYCOPYRRONIUM\INDACATEROL
     Dosage: UNK
     Route: 042
  53. GLYCOPYRRONIUM\INDACATEROL [Suspect]
     Active Substance: GLYCOPYRRONIUM\INDACATEROL
     Dosage: UNK
     Route: 042
  54. GLYCOPYRRONIUM\INDACATEROL [Suspect]
     Active Substance: GLYCOPYRRONIUM\INDACATEROL
     Dosage: UNK
     Route: 042
  55. GLYCOPYRRONIUM\INDACATEROL [Suspect]
     Active Substance: GLYCOPYRRONIUM\INDACATEROL
     Dosage: UNK
     Route: 042
  56. GLYCOPYRRONIUM\INDACATEROL [Suspect]
     Active Substance: GLYCOPYRRONIUM\INDACATEROL
     Dosage: UNK
     Route: 042
  57. GLYCOPYRRONIUM\INDACATEROL [Suspect]
     Active Substance: GLYCOPYRRONIUM\INDACATEROL
     Dosage: UNK
     Route: 042
  58. GLYCOPYRRONIUM\INDACATEROL [Suspect]
     Active Substance: GLYCOPYRRONIUM\INDACATEROL
     Dosage: UNK
     Route: 065
  59. GLYCOPYRRONIUM\INDACATEROL [Suspect]
     Active Substance: GLYCOPYRRONIUM\INDACATEROL
     Route: 042
  60. GLYCOPYRRONIUM\INDACATEROL [Suspect]
     Active Substance: GLYCOPYRRONIUM\INDACATEROL
     Dosage: UNK
     Route: 042
  61. GLYCOPYRRONIUM\INDACATEROL [Suspect]
     Active Substance: GLYCOPYRRONIUM\INDACATEROL
     Dosage: UNK
     Route: 042
  62. GLYCOPYRRONIUM\INDACATEROL [Suspect]
     Active Substance: GLYCOPYRRONIUM\INDACATEROL
     Dosage: UNK
     Route: 042
  63. GLYCOPYRRONIUM\INDACATEROL [Suspect]
     Active Substance: GLYCOPYRRONIUM\INDACATEROL
     Dosage: UNK
     Route: 042
  64. GLYCOPYRRONIUM\INDACATEROL [Suspect]
     Active Substance: GLYCOPYRRONIUM\INDACATEROL
     Dosage: UNK
     Route: 042
  65. GLYCOPYRRONIUM\INDACATEROL [Suspect]
     Active Substance: GLYCOPYRRONIUM\INDACATEROL
     Dosage: UNK
     Route: 042
  66. GLYCOPYRRONIUM\INDACATEROL [Suspect]
     Active Substance: GLYCOPYRRONIUM\INDACATEROL
     Dosage: UNK
     Route: 042
  67. GLYCOPYRRONIUM\INDACATEROL [Suspect]
     Active Substance: GLYCOPYRRONIUM\INDACATEROL
     Dosage: UNK
     Route: 065
  68. .ALPHA.-TOCOPHEROL [Suspect]
     Active Substance: .ALPHA.-TOCOPHEROL
     Indication: Product used for unknown indication
     Dosage: 400 IU, DAILY
     Route: 048
  69. .ALPHA.-TOCOPHEROL [Suspect]
     Active Substance: .ALPHA.-TOCOPHEROL
     Dosage: UNK
     Route: 048
  70. .ALPHA.-TOCOPHEROL [Suspect]
     Active Substance: .ALPHA.-TOCOPHEROL
     Dosage: UNK
     Route: 042
  71. .ALPHA.-TOCOPHEROL [Suspect]
     Active Substance: .ALPHA.-TOCOPHEROL
     Dosage: UNK
     Route: 065
  72. .ALPHA.-TOCOPHEROL [Suspect]
     Active Substance: .ALPHA.-TOCOPHEROL
     Dosage: UNK
     Route: 042
  73. .ALPHA.-TOCOPHEROL [Suspect]
     Active Substance: .ALPHA.-TOCOPHEROL
     Dosage: UNK
     Route: 042
  74. .ALPHA.-TOCOPHEROL [Suspect]
     Active Substance: .ALPHA.-TOCOPHEROL
     Dosage: UNK
     Route: 065
  75. .ALPHA.-TOCOPHEROL [Suspect]
     Active Substance: .ALPHA.-TOCOPHEROL
     Dosage: UNK
     Route: 065
  76. .ALPHA.-TOCOPHEROL [Suspect]
     Active Substance: .ALPHA.-TOCOPHEROL
     Dosage: UNK
     Route: 065
  77. .ALPHA.-TOCOPHEROL [Suspect]
     Active Substance: .ALPHA.-TOCOPHEROL
     Dosage: UNK
     Route: 042
  78. .ALPHA.-TOCOPHEROL [Suspect]
     Active Substance: .ALPHA.-TOCOPHEROL
     Route: 048
  79. .ALPHA.-TOCOPHEROL [Suspect]
     Active Substance: .ALPHA.-TOCOPHEROL
     Dosage: UNK
     Route: 042
  80. .ALPHA.-TOCOPHEROL [Suspect]
     Active Substance: .ALPHA.-TOCOPHEROL
     Dosage: UNK
     Route: 065
  81. .ALPHA.-TOCOPHEROL [Suspect]
     Active Substance: .ALPHA.-TOCOPHEROL
     Dosage: UNK
     Route: 042
  82. .ALPHA.-TOCOPHEROL [Suspect]
     Active Substance: .ALPHA.-TOCOPHEROL
     Dosage: UNK
     Route: 042
  83. .ALPHA.-TOCOPHEROL [Suspect]
     Active Substance: .ALPHA.-TOCOPHEROL
     Dosage: UNK
     Route: 065
  84. .ALPHA.-TOCOPHEROL [Suspect]
     Active Substance: .ALPHA.-TOCOPHEROL
     Dosage: UNK
     Route: 065
  85. .ALPHA.-TOCOPHEROL [Suspect]
     Active Substance: .ALPHA.-TOCOPHEROL
     Dosage: UNK
     Route: 065
  86. .ALPHA.-TOCOPHEROL [Suspect]
     Active Substance: .ALPHA.-TOCOPHEROL
     Dosage: UNK
     Route: 042
  87. WARFARIN [Suspect]
     Active Substance: WARFARIN
     Indication: Anticoagulant therapy
     Dosage: 10 MG, DAILY
     Route: 048
  88. WARFARIN [Suspect]
     Active Substance: WARFARIN
     Dosage: 10 ML, DAILY
     Route: 048
  89. CALCIUM CARBONATE [Suspect]
     Active Substance: CALCIUM CARBONATE
     Indication: Osteoporosis
     Dosage: 500 ML, BID
     Route: 048
  90. CALCIUM CARBONATE [Suspect]
     Active Substance: CALCIUM CARBONATE
     Dosage: 500 MG, BID
     Route: 048
  91. PREDNISONE ACETATE [Suspect]
     Active Substance: PREDNISONE ACETATE
     Indication: Product used for unknown indication
     Dosage: UNK
     Route: 048
  92. AZATHIOPRINE SODIUM [Suspect]
     Active Substance: AZATHIOPRINE SODIUM
     Indication: Product used for unknown indication
     Dosage: UNK
     Route: 065

REACTIONS (2)
  - Drug intolerance [Unknown]
  - Leukopenia [Unknown]
